FAERS Safety Report 7476628-1 (Version None)
Quarter: 2011Q2

REPORT INFORMATION
  Report Type: 
  Country: None (occurrence: None)
  Receive Date: 20110510
  Receipt Date: 20110510
  Transmission Date: 20111010
  Serious: Yes (Other)
  Sender: FDA-Public Use
  Company Number: None

PATIENT
  Age: 39 Year
  Sex: Female
  Weight: 130.1823 kg

DRUGS (1)
  1. LISINOPRIL AND HYDROCHLOROTHIAZIDE [Suspect]
     Indication: HYPERTENSION
     Dosage: 1/2 TAB DAILY PO
     Route: 048
     Dates: start: 20100326, end: 20110420

REACTIONS (7)
  - PAIN [None]
  - MUSCULOSKELETAL PAIN [None]
  - BACK PAIN [None]
  - ARTHRALGIA [None]
  - LETHARGY [None]
  - MOVEMENT DISORDER [None]
  - EMOTIONAL DISORDER [None]
